FAERS Safety Report 6535334-8 (Version None)
Quarter: 2010Q1

REPORT INFORMATION
  Report Type: 
  Country: None (occurrence: None)
  Receive Date: 20100113
  Receipt Date: 20100108
  Transmission Date: 20100710
  Serious: No
  Sender: FDA-Public Use
  Company Number: MX-ROCHE-678701

PATIENT
  Sex: Female
  Weight: 55 kg

DRUGS (1)
  1. ROACCUTANE [Suspect]
     Indication: ACNE
     Route: 048
     Dates: start: 20080401, end: 20090701

REACTIONS (2)
  - NO ADVERSE EVENT [None]
  - PREGNANCY [None]
